FAERS Safety Report 7312364-X (Version None)
Quarter: 2011Q1

REPORT INFORMATION
  Report Type: 
  Country: None (occurrence: None)
  Receive Date: 20110214
  Receipt Date: 20110211
  Transmission Date: 20110831
  Serious: Yes (Disabling)
  Sender: FDA-Public Use
  Company Number: 2011AP000183

PATIENT
  Age: 71 Year
  Sex: Female

DRUGS (12)
  1. CETIRIZINE HYDROCHLORIDE (CETIRIZINE HYDROCHLORIDE) [Concomitant]
  2. OMEPRAZOLE [Concomitant]
  3. CALCIUM (CALCIUM) [Concomitant]
  4. CLOBETASONE HUTYRATE (CLOBETASONE BUTYRATE) [Concomitant]
  5. DICLOFENAC (DICLOFENAC) [Concomitant]
  6. HYPROMELLOSE (HYPROMELLOSE) [Concomitant]
  7. BECLOMETASONE DIPROPIONATE (BECLOMETASONE DIPROPINATE) [Concomitant]
  8. SAALMETEROL (SALMETEROL) [Concomitant]
  9. ALENDRONATE SODIUM [Suspect]
     Indication: PRODUCT USED FOR UNKNOWN INDICATION
     Dates: start: 20101110
  10. FORMOTEROL FUMRATE (FORMOTEROL FUMARATE) [Concomitant]
  11. RISEDRONATE SODIUM [Concomitant]
  12. ALBUTEROL SULFATE [Concomitant]

REACTIONS (2)
  - BLISTER [None]
  - MOUTH ULCERATION [None]
